FAERS Safety Report 8565150-7 (Version None)
Quarter: 2012Q3

REPORT INFORMATION
  Report Type: 
  Country: None (occurrence: None)
  Receive Date: 20120723
  Receipt Date: 20120710
  Transmission Date: 20120928
  Serious: Yes (Hospitalization)
  Sender: FDA-Public Use
  Company Number: JPI-P-021993

PATIENT
  Age: 56 Year
  Sex: Male

DRUGS (24)
  1. CLONAZEPAM [Concomitant]
  2. FLAVOCOXID [Concomitant]
  3. METOCLOPRAMIDE [Concomitant]
  4. OMEPRAZOLE [Concomitant]
  5. XYREM [Suspect]
     Indication: NARCOLEPSY
     Dosage: 6 GM (3 GM, 2 IN 1 D), ORAL, 7.5 GM (3.75 GM, 2 IN 1 D), ORAL
     Route: 048
     Dates: start: 20060615
  6. XYREM [Suspect]
     Indication: NARCOLEPSY
     Dosage: 6 GM (3 GM, 2 IN 1 D), ORAL, 7.5 GM (3.75 GM, 2 IN 1 D), ORAL
     Route: 048
     Dates: start: 20060421
  7. PIOGLITAZONE [Concomitant]
  8. AMANTADINE HCL [Concomitant]
  9. OXYCODONE ASPAP [Concomitant]
  10. FENOFIBRATE [Concomitant]
  11. TADALAFIL [Concomitant]
  12. MULTI-VITAMIN [Concomitant]
  13. EZETIMIBE/SIMVASTATIN [Concomitant]
  14. NEBIVOLOL [Concomitant]
  15. FOLIC ACID [Concomitant]
  16. OMEGA-3-ACID ETHYL ESTERS [Concomitant]
  17. QUINAPRIL [Concomitant]
  18. LIDOCAINE [Concomitant]
  19. DUTASTERIDE [Concomitant]
  20. METAXALONE [Concomitant]
  21. GLUCOSAMINE/CHONDROITIN [Concomitant]
  22. PRAMIPEXOLE DIHYCHLORIDE [Concomitant]
  23. ANASTROZOLE [Concomitant]
  24. COLESEVELAM HYDROCHLORIDE [Concomitant]

REACTIONS (3)
  - THROMBOSIS [None]
  - INTERNATIONAL NORMALISED RATIO INCREASED [None]
  - PULMONARY THROMBOSIS [None]
